FAERS Safety Report 4406457-4 (Version None)
Quarter: 2004Q3

REPORT INFORMATION
  Report Type: 
  Country: None (occurrence: None)
  Receive Date: 20040723
  Receipt Date: 20040526
  Transmission Date: 20050211
  Serious: Yes (Death, Life-Threatening, Disabling)
  Sender: FDA-Public Use
  Company Number: BE-MERCK-0405BEL00039

PATIENT
  Age: 49 Year
  Sex: Female
  Weight: 44 kg

DRUGS (8)
  1. ZOVIRAX [Concomitant]
     Indication: ANTIVIRAL PROPHYLAXIS
     Route: 065
     Dates: start: 20040317, end: 20040330
  2. AMIKACIN [Concomitant]
     Indication: SEPSIS
     Route: 042
     Dates: start: 20040325, end: 20040330
  3. CANCIDAS [Suspect]
     Indication: ASPERGILLOSIS
     Route: 042
     Dates: start: 20040328, end: 20040330
  4. MAXIPIME [Concomitant]
     Indication: SEPSIS
     Route: 042
     Dates: start: 20040325, end: 20040330
  5. NEUPOGEN [Concomitant]
     Route: 058
     Dates: start: 20040326, end: 20040329
  6. FLUCONAZOLE [Concomitant]
     Indication: FUNGAL INFECTION
     Route: 042
     Dates: start: 20040325, end: 20040327
  7. AVELOX [Concomitant]
     Indication: ANTIVIRAL PROPHYLAXIS
     Route: 042
     Dates: start: 20040317, end: 20040330
  8. VANCOMYCIN [Concomitant]
     Indication: SEPSIS
     Route: 042
     Dates: start: 20040325, end: 20040330

REACTIONS (1)
  - MULTI-ORGAN FAILURE [None]
